FAERS Safety Report 13476145 (Version 1)
Quarter: 2017Q2

REPORT INFORMATION
  Report Type: Spontaneous
  Country: FR (occurrence: FR)
  Receive Date: 20170425
  Receipt Date: 20170425
  Transmission Date: 20170830
  Serious: Yes (Hospitalization, Other)
  Sender: FDA-Public Use
  Company Number: FR-ELI_LILLY_AND_COMPANY-FR201704006042

PATIENT
  Age: 79 Year
  Sex: Male

DRUGS (2)
  1. KARDEGIC [Suspect]
     Active Substance: ASPIRIN LYSINE
     Indication: PRODUCT USED FOR UNKNOWN INDICATION
     Dosage: 1 DF, QD
     Route: 048
     Dates: end: 20170203
  2. CYMBALTA [Suspect]
     Active Substance: DULOXETINE HYDROCHLORIDE
     Indication: PRODUCT USED FOR UNKNOWN INDICATION
     Dosage: 100 MG, QD
     Route: 048
     Dates: end: 20170203

REACTIONS (13)
  - Haemorrhagic anaemia [Recovered/Resolved]
  - Coagulation factor V level decreased [Recovered/Resolved]
  - Pulse absent [Unknown]
  - Heart sounds abnormal [Unknown]
  - Pain in extremity [Recovering/Resolving]
  - Muscle haemorrhage [Recovering/Resolving]
  - Oedema peripheral [Recovered/Resolved]
  - Cyanosis [Unknown]
  - Superinfection [Unknown]
  - Arteriosclerosis [Unknown]
  - Prothrombin level decreased [Recovered/Resolved]
  - Fat embolism [Unknown]
  - Thrombocytopenia [Unknown]

NARRATIVE: CASE EVENT DATE: 201701
